FAERS Safety Report 23033817 (Version 1)
Quarter: 2023Q4

REPORT INFORMATION
  Report Type: Spontaneous
  Country: GB (occurrence: GB)
  Receive Date: 20231005
  Receipt Date: 20231005
  Transmission Date: 20240110
  Serious: Yes (Other)
  Sender: FDA-Public Use
  Company Number: GB-MHRA-MED-202309281310475640-CTWMH

PATIENT
  Sex: Female
  Weight: 59 kg

DRUGS (1)
  1. TOPIRAMATE [Suspect]
     Active Substance: TOPIRAMATE
     Indication: Migraine
     Dosage: 50MG MORNING AND 50MG AT NIGHT; ;
     Route: 048
     Dates: end: 20230924

REACTIONS (5)
  - Muscle strength abnormal [Not Recovered/Not Resolved]
  - Illness [Not Recovered/Not Resolved]
  - Constipation [Not Recovered/Not Resolved]
  - Memory impairment [Not Recovered/Not Resolved]
  - Mood altered [Not Recovered/Not Resolved]
